FAERS Safety Report 22333472 (Version 1)
Quarter: 2023Q2

REPORT INFORMATION
  Report Type: Spontaneous
  Country: US (occurrence: US)
  Receive Date: 20230517
  Receipt Date: 20230517
  Transmission Date: 20230721
  Serious: No
  Sender: FDA-Public Use
  Company Number: US-APIL-2313165US

PATIENT
  Sex: Female
  Weight: 77.11 kg

DRUGS (2)
  1. KYBELLA [Suspect]
     Active Substance: DEOXYCHOLIC ACID
     Indication: Skin wrinkling
     Dosage: UNK, SINGLE
     Route: 058
     Dates: start: 20230314, end: 20230314
  2. KYBELLA [Suspect]
     Active Substance: DEOXYCHOLIC ACID
     Dosage: UNK, SINGLE
     Route: 058
     Dates: start: 202301, end: 202301

REACTIONS (6)
  - Injection site mass [Recovered/Resolved with Sequelae]
  - Acne [Not Recovered/Not Resolved]
  - Skin exfoliation [Unknown]
  - Muscular weakness [Unknown]
  - Off label use [Unknown]
  - Drug ineffective for unapproved indication [Unknown]
